FAERS Safety Report 8356913-1 (Version None)
Quarter: 2012Q2

REPORT INFORMATION
  Report Type: 
  Country: None (occurrence: None)
  Receive Date: 20120514
  Receipt Date: 20120503
  Transmission Date: 20120825
  Serious: Yes (Other)
  Sender: FDA-Public Use
  Company Number: CA-JNJFOC-20120504802

PATIENT
  Sex: Male
  Weight: 102 kg

DRUGS (2)
  1. REMICADE [Suspect]
     Indication: CROHN'S DISEASE
     Route: 042
     Dates: start: 20111220
  2. REMICADE [Suspect]
     Route: 042
     Dates: start: 20111007

REACTIONS (3)
  - INFLUENZA [None]
  - DEPRESSION [None]
  - ARTHRALGIA [None]
